FAERS Safety Report 14953281 (Version 2)
Quarter: 2019Q2

REPORT INFORMATION
  Report Type: Spontaneous
  Country: ES (occurrence: ES)
  Receive Date: 20180530
  Receipt Date: 20190509
  Transmission Date: 20190711
  Serious: Yes (Death, Other)
  Sender: FDA-Public Use
  Company Number: ES-JNJFOC-20180537784

PATIENT
  Age: 88 Year
  Sex: Female

DRUGS (14)
  1. FENTANYL. [Suspect]
     Active Substance: FENTANYL
     Indication: PRODUCT USED FOR UNKNOWN INDICATION
     Route: 065
     Dates: start: 20180430
  2. FENTANYL. [Suspect]
     Active Substance: FENTANYL
     Indication: PRODUCT USED FOR UNKNOWN INDICATION
     Route: 065
     Dates: start: 20180319, end: 20180430
  3. MORPHINE [Suspect]
     Active Substance: MORPHINE
     Indication: PRODUCT USED FOR UNKNOWN INDICATION
     Route: 042
  4. NALOXEGOL [Concomitant]
     Active Substance: NALOXEGOL
     Indication: PRODUCT USED FOR UNKNOWN INDICATION
     Route: 065
  5. DEXAMETHASONE. [Concomitant]
     Active Substance: DEXAMETHASONE
     Route: 058
     Dates: start: 20180430
  6. HYALURONIC ACID [Concomitant]
     Active Substance: HYALURONIC ACID
     Indication: PRODUCT USED FOR UNKNOWN INDICATION
     Route: 002
     Dates: start: 20180430
  7. DEXAMETHASONE. [Concomitant]
     Active Substance: DEXAMETHASONE
     Route: 048
     Dates: start: 20180319, end: 20180430
  8. BUSCAPINA [Concomitant]
     Route: 042
     Dates: start: 20180430
  9. ABSTRAL [Suspect]
     Active Substance: FENTANYL CITRATE
     Indication: BREAKTHROUGH PAIN
     Route: 060
     Dates: start: 20180319
  10. FENTANYL. [Suspect]
     Active Substance: FENTANYL
     Indication: PRODUCT USED FOR UNKNOWN INDICATION
     Route: 065
     Dates: end: 20180319
  11. METAMIZOLE SODIUM [Concomitant]
     Active Substance: METAMIZOLE SODIUM
     Indication: PRODUCT USED FOR UNKNOWN INDICATION
     Route: 065
     Dates: start: 20180430
  12. PARACETAMOL [Concomitant]
     Active Substance: ACETAMINOPHEN
     Indication: PRODUCT USED FOR UNKNOWN INDICATION
     Route: 065
  13. MIDAZOLAM [Concomitant]
     Active Substance: MIDAZOLAM HYDROCHLORIDE
     Indication: PRODUCT USED FOR UNKNOWN INDICATION
     Route: 042
  14. BUSCAPINA [Concomitant]
     Route: 042

REACTIONS (13)
  - Anuria [Unknown]
  - Tachyarrhythmia [Unknown]
  - Increased bronchial secretion [Unknown]
  - Discomfort [Unknown]
  - Death [Fatal]
  - Tachycardia [Unknown]
  - Abdominal pain [Unknown]
  - Dry mouth [Recovered/Resolved]
  - Insomnia [Recovered/Resolved]
  - Tachypnoea [Unknown]
  - Asthenia [Unknown]
  - Somnolence [Unknown]
  - Generalised oedema [Unknown]

NARRATIVE: CASE EVENT DATE: 201803
